FAERS Safety Report 14820101 (Version 2)
Quarter: 2018Q2

REPORT INFORMATION
  Report Type: Spontaneous
  Country: US (occurrence: US)
  Receive Date: 20180427
  Receipt Date: 20180509
  Transmission Date: 20180711
  Serious: Yes (Death)
  Sender: FDA-Public Use
  Company Number: US-UNITED THERAPEUTICS-UNT-2018-005833

PATIENT
  Sex: Male

DRUGS (1)
  1. REMODULIN [Suspect]
     Active Substance: TREPROSTINIL
     Indication: PULMONARY ARTERIAL HYPERTENSION
     Dosage: 0.0764 ?G/KG, CONTINUING, RATE OF 0.022ML/HR
     Route: 058
     Dates: start: 20161223, end: 20170727

REACTIONS (3)
  - Infection [Fatal]
  - Disease progression [Fatal]
  - Anaemia of chronic disease [Unknown]
